FAERS Safety Report 6151839-6 (Version None)
Quarter: 2009Q2

REPORT INFORMATION
  Report Type: 
  Country: None (occurrence: None)
  Receive Date: 20090408
  Receipt Date: 20090327
  Transmission Date: 20091009
  Serious: Yes (Hospitalization, Other)
  Sender: FDA-Public Use
  Company Number: 1000005529

PATIENT
  Age: 41 Year
  Sex: Female

DRUGS (5)
  1. CITALOPRAM HYDROBROMIDE [Suspect]
     Dates: start: 20070512, end: 20070512
  2. ATENOLOL [Suspect]
     Dates: start: 20070512, end: 20070512
  3. CLOZAPINE [Suspect]
     Dates: start: 20070512, end: 20070512
  4. EGAZIL [Suspect]
     Dates: start: 20070512, end: 20070512
  5. GENOTROPIN [Suspect]
     Indication: HYPOPITUITARISM
     Dosage: 0.9 MG (0.9 MG, 1 IN 1 D), SUBCUTANEOUS
     Route: 058
     Dates: start: 20021204

REACTIONS (3)
  - DRUG ADMINISTRATION ERROR [None]
  - LOSS OF CONSCIOUSNESS [None]
  - POISONING [None]
